FAERS Safety Report 5738873-2 (Version None)
Quarter: 2008Q2

REPORT INFORMATION
  Report Type: 
  Country: None (occurrence: None)
  Receive Date: 20080513
  Receipt Date: 20080505
  Transmission Date: 20081010
  Serious: Yes (Hospitalization)
  Sender: FDA-Public Use
  Company Number: CERZ-1000072

PATIENT
  Age: 3 Year
  Sex: Male
  Weight: 11.9 kg

DRUGS (2)
  1. CEREZYME [Suspect]
     Indication: GAUCHER'S DISEASE
     Dosage: 1400 U, Q2W, INTRAVENOUS
     Route: 042
     Dates: start: 20060830
  2. XOPENEX (LEVALBUTEROL) INHALATION GAS [Concomitant]

REACTIONS (5)
  - BRONCHITIS [None]
  - NASOPHARYNGITIS [None]
  - OXYGEN SATURATION DECREASED [None]
  - RESPIRATORY ARREST [None]
  - UPPER RESPIRATORY TRACT INFECTION [None]
